FAERS Safety Report 7349847-2 (Version None)
Quarter: 2011Q1

REPORT INFORMATION
  Report Type: 
  Country: None (occurrence: None)
  Receive Date: 20110314
  Receipt Date: 20110221
  Transmission Date: 20110831
  Serious: No
  Sender: FDA-Public Use
  Company Number: US-B.I. PHARMACEUTICALS,INC./RIDGEFIELD-2011-BP-04011BP

PATIENT
  Sex: Female

DRUGS (9)
  1. OMEPRAZOLE [Concomitant]
     Indication: GASTROOESOPHAGEAL REFLUX DISEASE
     Dosage: 40 MG
     Route: 048
  2. OTHER MEDICATION [Suspect]
  3. PRADAXA [Suspect]
     Indication: ATRIAL FIBRILLATION
     Dosage: 300 MG
     Route: 048
     Dates: start: 20110118, end: 20110220
  4. SOTALOL HYDROCHLORIDE [Concomitant]
     Indication: HEART RATE IRREGULAR
     Dosage: 240 MG
     Route: 048
  5. PRAVASTATIN [Concomitant]
     Indication: BLOOD CHOLESTEROL INCREASED
     Dosage: 10 MG
     Route: 048
  6. LEVOTHYROXINE [Concomitant]
     Indication: THYROIDECTOMY
  7. OSCAL + VITAMIN D [Concomitant]
     Indication: OSTEOPOROSIS
     Route: 048
  8. LISINOPRIL [Concomitant]
     Indication: HYPERTENSION
     Dosage: 5 MG
     Route: 048
  9. LEVOTHYROXINE [Concomitant]
     Indication: HYPOTHYROIDISM
     Dosage: 75 MCG
     Route: 048

REACTIONS (10)
  - NAUSEA [None]
  - CONSTIPATION [None]
  - NASOPHARYNGITIS [None]
  - VISION BLURRED [None]
  - CONFUSIONAL STATE [None]
  - ABDOMINAL PAIN UPPER [None]
  - DIARRHOEA [None]
  - OROPHARYNGEAL PAIN [None]
  - DIZZINESS [None]
  - GASTROOESOPHAGEAL REFLUX DISEASE [None]
